FAERS Safety Report 18189757 (Version 8)
Quarter: 2020Q3

REPORT INFORMATION
  Report Type: Report from Study
  Country: JP (occurrence: JP)
  Receive Date: 20200825
  Receipt Date: 20200930
  Transmission Date: 20201103
  Serious: Yes (Hospitalization, Other)
  Sender: FDA-Public Use
  Company Number: JP-BRISTOL-MYERS SQUIBB COMPANY-BMS-2020-066013

PATIENT
  Age: 72 Year
  Sex: Male
  Weight: 62.7 kg

DRUGS (8)
  1. NIVOLUMAB [Suspect]
     Active Substance: NIVOLUMAB
     Indication: BILE DUCT CANCER
     Dosage: 480 MILLIGRAM, Q4WK
     Route: 041
     Dates: start: 20200508
  2. BILANOA [Concomitant]
     Active Substance: BILASTINE
     Indication: RASH
     Dosage: 20 MILLIGRAM, QD
     Route: 048
     Dates: start: 20200702, end: 20200815
  3. PARIET [Concomitant]
     Active Substance: RABEPRAZOLE SODIUM
     Indication: GASTRITIS PROPHYLAXIS
     Dosage: 10 MILLIGRAM, QD
     Route: 048
  4. EXCELASE [Concomitant]
     Active Substance: PANCRELIPASE
     Indication: GASTRITIS PROPHYLAXIS
     Dosage: 2 DOSAGE FORM, Q8H
     Route: 048
  5. BIO?THREE [Concomitant]
     Active Substance: HERBALS
     Indication: PROPHYLAXIS AGAINST DIARRHOEA
     Dosage: 1 DOSAGE FORM, Q8H
     Route: 048
  6. MERISLON [Concomitant]
     Active Substance: BETAHISTINE MESILATE
     Indication: DIZZINESS
     Dosage: 6 MILLIGRAM, Q8H
     Route: 048
     Dates: start: 20200829
  7. HEPARINOID [Concomitant]
     Active Substance: CHONDROITIN SULFATE (BOVINE)
     Indication: DRY SKIN
     Dosage: UNK
     Route: 061
  8. ANTEBATE [Concomitant]
     Active Substance: BETAMETHASONE DIPROPIONATE
     Indication: DRY SKIN
     Dosage: UNK
     Route: 061

REACTIONS (2)
  - Biliary tract infection [Recovering/Resolving]
  - Adrenal insufficiency [Recovering/Resolving]

NARRATIVE: CASE EVENT DATE: 20200816
